FAERS Safety Report 26037660 (Version 1)
Quarter: 2025Q4

REPORT INFORMATION
  Report Type: Spontaneous
  Country: US (occurrence: US)
  Receive Date: 20251112
  Receipt Date: 20251112
  Transmission Date: 20260117
  Serious: No
  Sender: ABBVIE
  Company Number: US-ABBVIE-6536368

PATIENT
  Sex: Female

DRUGS (1)
  1. OXYTROL [Suspect]
     Active Substance: OXYBUTYNIN
     Indication: Hypertonic bladder
     Route: 065
     Dates: start: 2018

REACTIONS (5)
  - Burning sensation [Unknown]
  - Pruritus [Unknown]
  - Product adhesion issue [Unknown]
  - Product adhesion issue [Unknown]
  - Discomfort [Unknown]
